FAERS Safety Report 24973084 (Version 1)
Quarter: 2025Q1

REPORT INFORMATION
  Report Type: Report from Study
  Country: IN (occurrence: IN)
  Receive Date: 20250216
  Receipt Date: 20250216
  Transmission Date: 20250408
  Serious: Yes (Death, Other)
  Sender: AUROBINDO
  Company Number: IN-AUROBINDO-AUR-APL-2025-007913

PATIENT
  Age: 6 Year
  Sex: Female

DRUGS (7)
  1. MELPHALAN [Suspect]
     Active Substance: MELPHALAN
     Indication: Aplastic anaemia
     Route: 065
  2. CYCLOSPORINE [Suspect]
     Active Substance: CYCLOSPORINE
     Indication: Prophylaxis against graft versus host disease
     Route: 042
  3. CYCLOSPORINE [Suspect]
     Active Substance: CYCLOSPORINE
     Route: 048
  4. MYCOPHENOLATE MOFETIL [Suspect]
     Active Substance: MYCOPHENOLATE MOFETIL
     Indication: Prophylaxis against graft versus host disease
     Dosage: 15 MILLIGRAM/KILOGRAM, 3 TIMES A DAY
     Route: 048
  5. CYCLOPHOSPHAMIDE [Suspect]
     Active Substance: CYCLOPHOSPHAMIDE
     Indication: Prophylaxis against graft versus host disease
     Route: 065
  6. FLUDARABINE [Suspect]
     Active Substance: FLUDARABINE PHOSPHATE
     Indication: Aplastic anaemia
     Route: 065
  7. BUSULFAN [Suspect]
     Active Substance: BUSULFAN
     Indication: Aplastic anaemia
     Dosage: 0.8 MILLIGRAM/KILOGRAM, FOUR TIMES/DAY
     Route: 065

REACTIONS (3)
  - Bacterial infection [Fatal]
  - Haemophagocytic lymphohistiocytosis [Unknown]
  - Cytomegalovirus infection [Unknown]
